FAERS Safety Report 5409318-7 (Version None)
Quarter: 2007Q3

REPORT INFORMATION
  Report Type: 
  Country: None (occurrence: None)
  Receive Date: 20070807
  Receipt Date: 20070724
  Transmission Date: 20080115
  Serious: Yes (Death, Life-Threatening, Other)
  Sender: FDA-Public Use
  Company Number: 2007JP002765

PATIENT
  Age: 31 Year
  Sex: Female

DRUGS (2)
  1. TACROLIMUS [Suspect]
     Indication: LUPUS NEPHRITIS
     Dosage: 1.5 MG/D, ORAL
     Route: 048
     Dates: start: 20070301
  2. STEROID() PER ORAL NOS [Suspect]
     Dosage: ORAL
     Route: 048

REACTIONS (4)
  - ENDOCARDITIS STAPHYLOCOCCAL [None]
  - MALAISE [None]
  - RENAL FAILURE ACUTE [None]
  - SEPTIC SHOCK [None]
